FAERS Safety Report 21232619 (Version 1)
Quarter: 2022Q3

REPORT INFORMATION
  Report Type: Spontaneous
  Country: US (occurrence: None)
  Receive Date: 20220818
  Receipt Date: 20220818
  Transmission Date: 20221027
  Serious: No
  Sender: FDA-Public Use
  Company Number: None

PATIENT
  Age: 53 Year
  Sex: Female
  Weight: 63.5 kg

DRUGS (1)
  1. ENBREL [Suspect]
     Active Substance: ETANERCEPT
     Dosage: 50MG WEEKLY SQ
     Route: 058
     Dates: start: 20220728

REACTIONS (2)
  - Injection site pruritus [None]
  - Urticaria [None]

NARRATIVE: CASE EVENT DATE: 20220818
